FAERS Safety Report 9366689 (Version 2)
Quarter: 2013Q3

REPORT INFORMATION
  Report Type: Spontaneous
  Country: US (occurrence: US)
  Receive Date: 20130625
  Receipt Date: 20130827
  Transmission Date: 20140515
  Serious: Yes (Hospitalization, Other)
  Sender: FDA-Public Use
  Company Number: US-PAR PHARMACEUTICAL, INC-2013SCPR005990

PATIENT
  Sex: 0

DRUGS (1)
  1. METOCLOPRAMIDE [Suspect]
     Indication: DIABETIC GASTROPARESIS
     Dosage: 10 MG, BEFORE MEALS, AT BEDTIME AND WITH SNACKS
     Route: 048

REACTIONS (7)
  - Diabetic ketoacidosis [Recovering/Resolving]
  - Cellulitis orbital [Recovering/Resolving]
  - Memory impairment [Unknown]
  - Restless legs syndrome [Recovering/Resolving]
  - Pneumonia [Recovering/Resolving]
  - Seborrhoeic dermatitis [Unknown]
  - Dyskinesia [Recovering/Resolving]
